FAERS Safety Report 4708387-7 (Version None)
Quarter: 2005Q3

REPORT INFORMATION
  Report Type: 
  Country: None (occurrence: None)
  Receive Date: 20050706
  Receipt Date: 20050616
  Transmission Date: 20060218
  Serious: No
  Sender: FDA-Public Use
  Company Number: 2005IP000194

PATIENT
  Age: 88 Year
  Sex: Female

DRUGS (1)
  1. XIBROM [Suspect]
     Indication: INFLAMMATION
     Dosage: 1 GTT; TID; OPH
     Route: 047

REACTIONS (3)
  - CATARACT OPERATION [None]
  - CORNEAL OEDEMA [None]
  - DETACHED DESCEMET'S MEMBRANE [None]
